FAERS Safety Report 13696584 (Version 2)
Quarter: 2017Q3

REPORT INFORMATION
  Report Type: Report from Study
  Country: CN (occurrence: CN)
  Receive Date: 20170628
  Receipt Date: 20170913
  Transmission Date: 20171127
  Serious: Yes (Other)
  Sender: FDA-Public Use
  Company Number: PHHY2017CN094200

PATIENT
  Age: 44 Year
  Sex: Female

DRUGS (13)
  1. METHYLPREDNISOLONE. [Suspect]
     Active Substance: METHYLPREDNISOLONE
     Dosage: 500 MG/DL, UNK
     Route: 065
     Dates: start: 20170403, end: 20170403
  2. BASILIXIMAB [Suspect]
     Active Substance: BASILIXIMAB
     Indication: IMMUNOSUPPRESSANT DRUG THERAPY
     Dosage: 20 MG/DL, UNK
     Route: 065
     Dates: start: 20170331, end: 20170331
  3. METHYLPREDNISOLONE. [Suspect]
     Active Substance: METHYLPREDNISOLONE
     Dosage: 500 MG/DL, UNK
     Route: 065
     Dates: start: 20170327, end: 20170329
  4. BASILIXIMAB [Suspect]
     Active Substance: BASILIXIMAB
     Indication: RENAL TRANSPLANT
     Dosage: 20 MG/DL, UNK
     Route: 065
     Dates: start: 20170327, end: 20170327
  5. PREDNISONE. [Suspect]
     Active Substance: PREDNISONE
     Indication: IMMUNOSUPPRESSANT DRUG THERAPY
     Dosage: 30 MG/DL, UNK
     Route: 065
     Dates: start: 20170330, end: 20170330
  6. PREDNISONE. [Suspect]
     Active Substance: PREDNISONE
     Dosage: 30 MG/DL, UNK
     Route: 065
     Dates: start: 20170331, end: 20170405
  7. PREDNISONE. [Suspect]
     Active Substance: PREDNISONE
     Dosage: 25 MG/DL, UNK
     Route: 065
     Dates: start: 20170406
  8. TACROLIMUS. [Suspect]
     Active Substance: TACROLIMUS
     Indication: IMMUNOSUPPRESSANT DRUG THERAPY
     Dosage: 8 MG/DL, UNK
     Route: 065
     Dates: start: 20170327, end: 20170327
  9. TACROLIMUS. [Suspect]
     Active Substance: TACROLIMUS
     Dosage: 8 MG/DL, UNK
     Route: 065
     Dates: start: 20170328, end: 20170407
  10. TACROLIMUS. [Suspect]
     Active Substance: TACROLIMUS
     Dosage: 10 MG/DL, UNK
     Route: 065
     Dates: start: 20170408
  11. MYFORTIC [Suspect]
     Active Substance: MYCOPHENOLATE SODIUM
     Indication: RENAL TRANSPLANT
     Dosage: 2620 MG/DL, UNK
     Route: 065
     Dates: start: 20170327, end: 20170327
  12. MYFORTIC [Suspect]
     Active Substance: MYCOPHENOLATE SODIUM
     Indication: IMMUNOSUPPRESSANT DRUG THERAPY
     Dosage: 1440 MG/DL, UNK
     Route: 065
     Dates: start: 20170328
  13. METHYLPREDNISOLONE. [Suspect]
     Active Substance: METHYLPREDNISOLONE
     Indication: IMMUNOSUPPRESSANT DRUG THERAPY
     Dosage: 500 MG/DL, UNK
     Route: 065
     Dates: start: 20170326, end: 20170326

REACTIONS (12)
  - Aspartate aminotransferase increased [Unknown]
  - Protein urine present [Recovering/Resolving]
  - Lymphocyte count decreased [Recovering/Resolving]
  - Diarrhoea [Recovering/Resolving]
  - Alanine aminotransferase increased [Recovering/Resolving]
  - Neutrophil count increased [Recovering/Resolving]
  - Blood glucose increased [Recovering/Resolving]
  - White blood cell count increased [Recovering/Resolving]
  - Haemoglobin decreased [Recovering/Resolving]
  - Red blood cells urine positive [Unknown]
  - Blood albumin decreased [Recovering/Resolving]
  - Platelet count decreased [Recovering/Resolving]

NARRATIVE: CASE EVENT DATE: 20170330
